FAERS Safety Report 15014917 (Version 1)
Quarter: 2018Q2

REPORT INFORMATION
  Report Type: Other
  Country: FR (occurrence: FR)
  Receive Date: 20180615
  Receipt Date: 20180615
  Transmission Date: 20180711
  Serious: Yes (Hospitalization, Other)
  Sender: FDA-Public Use
  Company Number: FR-MACLEODS PHARMACEUTICALS US LTD-MAC2018014267

PATIENT

DRUGS (9)
  1. ESCITALOPRAM OXALATE. [Suspect]
     Active Substance: ESCITALOPRAM OXALATE
     Indication: DEPRESSION
     Dosage: 5 MILLIGRAM, QD
     Route: 048
     Dates: start: 20180319, end: 20180404
  2. LACTULOSE MYLAN 10 G/15 ML [Concomitant]
     Indication: CONSTIPATION
     Dosage: 10 GRAM, QD, ORAL SOLUTION IN SACHET
     Route: 048
  3. RAMIPRIL MYLAN 5 MG [Suspect]
     Active Substance: RAMIPRIL
     Indication: HYPERTENSION
     Dosage: 5 MILLIGRAM, QD, TABLET BREACKABLE
     Route: 048
     Dates: start: 2016, end: 20180404
  4. OMEPRAZOLE MYLAN 20 MG [Suspect]
     Active Substance: OMEPRAZOLE
     Indication: GASTROOESOPHAGEAL REFLUX DISEASE
     Dosage: 20 MILLIGRAM, QD
     Route: 048
     Dates: end: 20180404
  5. ICAZ LP 2.5 MG [Concomitant]
     Indication: HYPERTENSION
     Dosage: 2.5 MILLIGRAM, QD
     Route: 048
     Dates: start: 2016
  6. ALENDRONIC ACID [Concomitant]
     Active Substance: ALENDRONIC ACID
     Indication: OSTEOPOROSIS
     Dosage: 70 MILLIGRAM, 1 SECOND
     Route: 048
     Dates: start: 2016
  7. CALPEROS D3 [Concomitant]
     Active Substance: CALCIUM CARBONATE\CHOLECALCIFEROL
     Indication: OSTEOPOROSIS
     Dosage: 500 MILLIGRAM, QD, SUCKING TABLET
     Route: 048
     Dates: start: 2016
  8. CERIS 20 MG [Concomitant]
     Indication: URINARY INCONTINENCE
     Dosage: 40 MILLIGRAM, QD
     Route: 048
     Dates: start: 2016
  9. SODIUM ALGINATE SODIUM BICARBONATE MYLAN [Concomitant]
     Indication: GASTROOESOPHAGEAL REFLUX DISEASE
     Dosage: 4 DOSAGE FORM, QD
     Route: 048
     Dates: start: 2016

REACTIONS (3)
  - Hyperkalaemia [Recovered/Resolved]
  - Hypoglycaemia [Recovered/Resolved]
  - Hyponatraemia [Recovered/Resolved]

NARRATIVE: CASE EVENT DATE: 20180404
